FAERS Safety Report 6680918-X (Version None)
Quarter: 2010Q2

REPORT INFORMATION
  Report Type: 
  Country: None (occurrence: None)
  Receive Date: 20100414
  Receipt Date: 20100412
  Transmission Date: 20101027
  Serious: Yes (Other)
  Sender: FDA-Public Use
  Company Number: US-SANOFI-AVENTIS-2010SA021272

PATIENT
  Sex: Male

DRUGS (7)
  1. PLAVIX [Suspect]
     Route: 048
  2. PLAVIX [Suspect]
     Route: 048
  3. LOVENOX [Suspect]
     Route: 065
  4. LOVENOX [Suspect]
     Route: 058
     Dates: start: 20100412
  5. LIPITOR [Concomitant]
  6. METOPROLOL TARTRATE [Concomitant]
  7. ASPIRIN [Concomitant]

REACTIONS (1)
  - THROMBOSIS [None]
